FAERS Safety Report 26192764 (Version 1)
Quarter: 2025Q4

REPORT INFORMATION
  Report Type: Spontaneous
  Country: US (occurrence: US)
  Receive Date: 20251223
  Receipt Date: 20251223
  Transmission Date: 20260118
  Serious: Yes (Life-Threatening, Hospitalization)
  Sender: DR REDDYS
  Company Number: None

PATIENT
  Age: 88 Year
  Sex: Female

DRUGS (11)
  1. HEPARIN [Suspect]
     Active Substance: HEPARIN SODIUM
     Indication: Acute myocardial infarction
     Dosage: BOLUS
     Route: 030
  2. HEPARIN [Suspect]
     Active Substance: HEPARIN SODIUM
     Dosage: INFUSION AT 12 UNITS/KG/H
     Route: 030
  3. CLOPIDOGREL [Suspect]
     Active Substance: CLOPIDOGREL BISULFATE
     Indication: Acute myocardial infarction
     Dosage: DUAL ANTIPLATELET THERAPY LOADING DOSE
  4. CLOPIDOGREL [Suspect]
     Active Substance: CLOPIDOGREL BISULFATE
  5. ASPIRIN [Suspect]
     Active Substance: ASPIRIN
     Indication: Acute myocardial infarction
     Dosage: LOADING DOSE
  6. ASPIRIN [Suspect]
     Active Substance: ASPIRIN
  7. OLANZAPINE [Concomitant]
     Active Substance: OLANZAPINE
     Indication: Delirium
     Dosage: INTRAMUSCULAR OLANZAPINE 5 MG AT 0134 HOURS (LEFT THIGH) AND 0552 HOURS (LEFT THIGH)
     Route: 030
  8. OLANZAPINE [Concomitant]
     Active Substance: OLANZAPINE
     Indication: Agitation
  9. ZIPRASIDONE [Concomitant]
     Active Substance: ZIPRASIDONE
     Indication: Delirium
     Dosage: INTRAMUSCULAR ZIPRASIDONE 10 MG AT 0617HOURS (RIGHT THIGH) AND 2307 HOURS (RIGHT DELTOID).
     Route: 030
  10. ZIPRASIDONE [Concomitant]
     Active Substance: ZIPRASIDONE
     Indication: Agitation
  11. DEXMEDETOMIDINE [Concomitant]
     Active Substance: DEXMEDETOMIDINE
     Indication: Agitation
     Dosage: GIVEN AT 1711 HOURS
     Route: 060

REACTIONS (1)
  - Haematoma muscle [Recovering/Resolving]
